FAERS Safety Report 6511514-2 (Version None)
Quarter: 2009Q4

REPORT INFORMATION
  Report Type: 
  Country: None (occurrence: None)
  Receive Date: 20091222
  Receipt Date: 20090416
  Transmission Date: 20100525
  Serious: No
  Sender: FDA-Public Use
  Company Number: US-ASTRAZENECA-2009UW09538

PATIENT
  Sex: Female

DRUGS (8)
  1. CRESTOR [Suspect]
     Route: 048
  2. ENABLEX [Concomitant]
  3. PREVACID [Concomitant]
  4. NEXIUM [Concomitant]
  5. COZAAR [Concomitant]
  6. LEXAPRO [Concomitant]
  7. ASPIRIN [Concomitant]
  8. BYSTOLIC [Concomitant]

REACTIONS (3)
  - ARTHRALGIA [None]
  - HYPOAESTHESIA [None]
  - ILL-DEFINED DISORDER [None]
